FAERS Safety Report 9698882 (Version 1)
Quarter: 2013Q4

REPORT INFORMATION
  Report Type: Spontaneous
  Country: US (occurrence: US)
  Receive Date: 20131120
  Receipt Date: 20131120
  Transmission Date: 20140711
  Serious: Yes (Other)
  Sender: FDA-Public Use
  Company Number: US-PFIZER INC-2013330569

PATIENT
  Age: 9 Decade
  Sex: Female

DRUGS (1)
  1. ADVIL LIQUIGEL [Suspect]
     Dosage: UNK

REACTIONS (4)
  - Oesophageal stenosis [Unknown]
  - Foreign body [Unknown]
  - Throat irritation [Unknown]
  - Malaise [Not Recovered/Not Resolved]
